FAERS Safety Report 12897103 (Version 1)
Quarter: 2016Q4

REPORT INFORMATION
  Report Type: Spontaneous
  Country: US (occurrence: US)
  Receive Date: 20161028
  Receipt Date: 20161028
  Transmission Date: 20170207
  Serious: Yes (Other)
  Sender: FDA-Public Use
  Company Number: None

PATIENT
  Age: 52 Year
  Sex: Male
  Weight: 81 kg

DRUGS (3)
  1. ENTYVIO [Suspect]
     Active Substance: VEDOLIZUMAB
     Indication: CROHN^S DISEASE
     Dates: start: 20140722, end: 20150828
  2. WARFARIN [Concomitant]
     Active Substance: WARFARIN
  3. OSTOMY APPLIANCE [Concomitant]

REACTIONS (1)
  - Colon cancer [None]

NARRATIVE: CASE EVENT DATE: 20150826
